FAERS Safety Report 24194774 (Version 1)
Quarter: 2024Q3

REPORT INFORMATION
  Report Type: Spontaneous
  Country: FR (occurrence: FR)
  Receive Date: 20240809
  Receipt Date: 20240809
  Transmission Date: 20241017
  Serious: Yes (Hospitalization, Other)
  Sender: PFIZER
  Company Number: None

PATIENT
  Age: 65 Year
  Sex: Female

DRUGS (4)
  1. CLINDAMYCIN [Suspect]
     Active Substance: CLINDAMYCIN
     Indication: Endocarditis
     Dosage: UNK
     Route: 048
     Dates: start: 20230314
  2. AUGMENTIN [Suspect]
     Active Substance: AMOXICILLIN\CLAVULANATE POTASSIUM
     Indication: Bacteraemia
     Dosage: 2 G, 3X/DAY
     Route: 048
     Dates: start: 20230312
  3. CLOXACILLIN [Suspect]
     Active Substance: CLOXACILLIN
     Indication: Endocarditis
     Dosage: UNK
     Route: 048
     Dates: start: 20230314
  4. LEVOFLOXACIN [Suspect]
     Active Substance: LEVOFLOXACIN
     Indication: Endocarditis
     Dosage: UNK
     Route: 048
     Dates: start: 20230314

REACTIONS (1)
  - Hepatitis cholestatic [Recovering/Resolving]

NARRATIVE: CASE EVENT DATE: 20230330
